FAERS Safety Report 22074759 (Version 1)
Quarter: 2023Q1

REPORT INFORMATION
  Report Type: Spontaneous
  Country: US (occurrence: None)
  Receive Date: 20230308
  Receipt Date: 20230308
  Transmission Date: 20230418
  Serious: Yes (Other)
  Sender: FDA-Public Use
  Company Number: None

PATIENT
  Age: 63 Year
  Sex: Male
  Weight: 78.75 kg

DRUGS (5)
  1. TRULICITY [Suspect]
     Active Substance: DULAGLUTIDE
     Indication: Diabetes mellitus
     Dosage: OTHER QUANTITY : 1 EPIPEN?FREQUENCY : WEEKLY?OTHER ROUTE : INJECTION INTO ABDOMINAL AREA?
     Route: 050
     Dates: start: 20221023, end: 20230219
  2. NEBIVOLOL [Concomitant]
     Active Substance: NEBIVOLOL
  3. Men^s 50plus centrum multivitamin [Concomitant]
  4. FISH OIL [Concomitant]
     Active Substance: FISH OIL
  5. ALIGN [Concomitant]
     Active Substance: BIFIDOBACTERIUM LONGUM SUBSP. INFANTIS

REACTIONS (3)
  - Diarrhoea [None]
  - Hypophagia [None]
  - Loss of personal independence in daily activities [None]

NARRATIVE: CASE EVENT DATE: 20230219
